FAERS Safety Report 17279216 (Version 2)
Quarter: 2020Q1

REPORT INFORMATION
  Report Type: Spontaneous
  Country: US (occurrence: US)
  Receive Date: 20200116
  Receipt Date: 20200212
  Transmission Date: 20200409
  Serious: Yes (Death, Hospitalization)
  Sender: FDA-Public Use
  Company Number: US-TOLMAR, INC.-20US019875

PATIENT
  Age: 59 Year
  Sex: Male

DRUGS (1)
  1. METRONIDAZOLE. [Suspect]
     Active Substance: METRONIDAZOLE
     Indication: CLOSTRIDIUM DIFFICILE COLITIS
     Dosage: 500 MG, Q 8 HR
     Route: 042

REACTIONS (4)
  - Toxic encephalopathy [Fatal]
  - Rectal haemorrhage [Fatal]
  - Off label use [Unknown]
  - Coagulopathy [Fatal]
